FAERS Safety Report 13405658 (Version 1)
Quarter: 2017Q2

REPORT INFORMATION
  Report Type: Spontaneous
  Country: GB (occurrence: GB)
  Receive Date: 20170405
  Receipt Date: 20170405
  Transmission Date: 20170830
  Serious: Yes (Other)
  Sender: FDA-Public Use
  Company Number: PHHY2017GB046050

PATIENT
  Age: 36 Year
  Sex: Female
  Weight: 46.6 kg

DRUGS (17)
  1. ACIDEX [Concomitant]
     Active Substance: CALCIUM CARBONATE\SODIUM ALGINATE\SODIUM BICARBONATE
     Indication: DECREASED APPETITE
     Dosage: 10 ML, UNK
     Route: 048
     Dates: start: 20170118
  2. METFORMIN [Concomitant]
     Active Substance: METFORMIN HYDROCHLORIDE
     Indication: PRODUCT USED FOR UNKNOWN INDICATION
     Route: 065
  3. LANSOPRAZOLE. [Concomitant]
     Active Substance: LANSOPRAZOLE
     Indication: DECREASED APPETITE
     Dosage: 30 MG, UNK
     Route: 048
     Dates: start: 20120110
  4. IBUPROFEN. [Concomitant]
     Active Substance: IBUPROFEN
     Indication: PRODUCT USED FOR UNKNOWN INDICATION
     Route: 065
  5. IMIGRAN [Concomitant]
     Active Substance: SUMATRIPTAN SUCCINATE
     Indication: PRODUCT USED FOR UNKNOWN INDICATION
     Route: 065
  6. LAXIDO [Concomitant]
     Active Substance: POLYETHYLENE GLYCOL 3350\POTASSIUM CHLORIDE\SODIUM BICARBONATE\SODIUM CHLORIDE
     Indication: DECREASED APPETITE
     Dosage: 2 DF, UNK
     Route: 048
     Dates: start: 20120222
  7. FOLIC ACID. [Concomitant]
     Active Substance: FOLIC ACID
     Indication: DECREASED APPETITE
     Dosage: 5 MG, UNK
     Route: 048
     Dates: start: 20120111
  8. GABAPENTIN. [Concomitant]
     Active Substance: GABAPENTIN
     Indication: DECREASED APPETITE
     Dosage: 200 MG, UNK
     Route: 048
     Dates: start: 20120222
  9. CO-AMOXICLAV [Suspect]
     Active Substance: AMOXICILLIN\CLAVULANIC ACID
     Indication: GASTROSTOMY
     Dosage: 480 MG
     Route: 042
     Dates: start: 20170308, end: 20170308
  10. MERCAPTOPURINE. [Concomitant]
     Active Substance: MERCAPTOPURINE
     Indication: PRODUCT USED FOR UNKNOWN INDICATION
     Route: 065
  11. CYANOCOBALAMIN. [Concomitant]
     Active Substance: CYANOCOBALAMIN
     Indication: DECREASED APPETITE
     Dosage: 50 UG, UNK
     Route: 048
     Dates: start: 20170111
  12. TRAMADOL. [Concomitant]
     Active Substance: TRAMADOL
     Indication: DECREASED APPETITE
     Dosage: 100 MG, UNK
     Route: 048
     Dates: start: 20170216
  13. FORCEVAL [Concomitant]
     Active Substance: FOLIC ACID\IRON\MINERALS\VITAMINS
     Indication: DECREASED APPETITE
     Dosage: 1 DF, UNK
     Route: 048
     Dates: start: 20120111
  14. PRUCALOPRIDE [Concomitant]
     Active Substance: PRUCALOPRIDE
     Indication: PRODUCT USED FOR UNKNOWN INDICATION
     Route: 065
  15. ENOXAPARIN [Concomitant]
     Active Substance: ENOXAPARIN
     Indication: DECREASED APPETITE
     Dosage: 20 MG, UNK
     Route: 058
     Dates: start: 20120111
  16. ADALIMUMAB [Concomitant]
     Active Substance: ADALIMUMAB
     Indication: DECREASED APPETITE
     Dosage: 160 MG, UNK
     Route: 058
     Dates: start: 20170220, end: 20170220
  17. HYDROXOCOBALAMIN [Concomitant]
     Active Substance: HYDROXOCOBALAMIN
     Indication: PRODUCT USED FOR UNKNOWN INDICATION
     Route: 065

REACTIONS (5)
  - Eye pruritus [Recovered/Resolved]
  - Pruritus [Recovered/Resolved]
  - Paraesthesia [Recovered/Resolved]
  - Oral pruritus [Recovered/Resolved]
  - Paraesthesia oral [Recovered/Resolved]

NARRATIVE: CASE EVENT DATE: 20170308
